FAERS Safety Report 14776351 (Version 1)
Quarter: 2018Q2

REPORT INFORMATION
  Report Type: Other
  Country: CN (occurrence: CN)
  Receive Date: 20180418
  Receipt Date: 20180418
  Transmission Date: 20180711
  Serious: Yes (Other)
  Sender: FDA-Public Use
  Company Number: CN-GE HEALTHCARE LIFE SCIENCES-2018CSU001483

PATIENT

DRUGS (1)
  1. OMNIPAQUE [Suspect]
     Active Substance: IOHEXOL
     Indication: RECTAL CANCER
     Dosage: 100 ML, SINGLE
     Route: 041
     Dates: start: 20171204, end: 20171204

REACTIONS (1)
  - Hiccups [Recovering/Resolving]

NARRATIVE: CASE EVENT DATE: 20171204
